FAERS Safety Report 4307165-0 (Version None)
Quarter: 2004Q1

REPORT INFORMATION
  Report Type: 
  Country: None (occurrence: None)
  Receive Date: 20040225
  Receipt Date: 20040211
  Transmission Date: 20041129
  Serious: Yes (Hospitalization)
  Sender: FDA-Public Use
  Company Number: 2004-BP-01038AU

PATIENT
  Sex: Male

DRUGS (4)
  1. MOBIC [Suspect]
     Indication: ARTHRITIS
     Dosage: PO
     Route: 048
     Dates: start: 20030226, end: 20030326
  2. TRAMAL (NR) [Concomitant]
  3. DOTHIEPIN HYDROCHLORIDE (NR) [Concomitant]
  4. ANGINNE (TA) [Concomitant]

REACTIONS (2)
  - CHEST PAIN [None]
  - DYSPEPSIA [None]
